FAERS Safety Report 9290069 (Version 2)
Quarter: 2013Q2

REPORT INFORMATION
  Report Type: Spontaneous
  Country: US (occurrence: None)
  Receive Date: 20130510
  Receipt Date: 20130628
  Transmission Date: 20140414
  Serious: Yes (Hospitalization)
  Sender: FDA-Public Use
  Company Number: ACO_35846_2013

PATIENT
  Age: 45 Year
  Sex: Female

DRUGS (15)
  1. AMPYRA [Suspect]
     Indication: MULTIPLE SCLEROSIS
     Dates: start: 20100517
  2. REBIF (INTERFERON BETA-1A) [Concomitant]
  3. LASIX (FUROSEMIDE) [Concomitant]
  4. LYRICA (PREGABALIN) [Concomitant]
  5. FOLIC ACID (FOLIC ACID) [Concomitant]
  6. ALPRAZOLAM (ALPRAZOLAM) [Concomitant]
  7. SPIRONOLACTONE (SPIRONOLACTONE) [Concomitant]
  8. METFORMIN HCL (METFORMIN HYDROCHLORIDE) [Concomitant]
  9. ASPIRIN (ACETYLSALICYLIC ACID) [Concomitant]
  10. AMANTADINE (AMANTADINE HYDROCHLORIDE) [Concomitant]
  11. IMIPRAMINE HCL (IMIPRAMINE HYDROCHLORIDE) [Concomitant]
  12. LOSARTAN (LOSARTAN POTASSIUM) [Concomitant]
  13. GABAPENTIN (GABAPENTIN) [Concomitant]
  14. CITALOPRAM (CITALOPRAM HYDROBOMIDE) [Concomitant]
  15. PERCOCET [Concomitant]

REACTIONS (3)
  - Urinary tract infection [None]
  - Multiple sclerosis relapse [None]
  - Contusion [None]
